FAERS Safety Report 9961115 (Version 2)
Quarter: 2014Q1

REPORT INFORMATION
  Report Type: Spontaneous
  Country: GB (occurrence: GB)
  Receive Date: 20140305
  Receipt Date: 20140328
  Transmission Date: 20141002
  Serious: Yes (Hospitalization)
  Sender: FDA-Public Use
  Company Number: GB-ASTRAZENECA-2014SE13578

PATIENT
  Sex: Male

DRUGS (3)
  1. SYMBICORT [Suspect]
     Indication: ASTHMA
     Dosage: 80/4.5 MCG, 2 PUFFS TWICE DAILY
     Route: 055
     Dates: start: 20140222, end: 20140223
  2. SALBUTAMOL [Concomitant]
     Indication: ASTHMA
     Dosage: 2 PUFFS
     Route: 055
     Dates: start: 20140222
  3. PREDNISOLONE [Concomitant]
     Indication: ASTHMA
     Route: 048
     Dates: start: 20140222

REACTIONS (1)
  - Condition aggravated [Unknown]
